FAERS Safety Report 10037921 (Version 1)
Quarter: 2014Q1

REPORT INFORMATION
  Report Type: Spontaneous
  Country: US (occurrence: None)
  Receive Date: 20140306
  Receipt Date: 20140306
  Transmission Date: 20141002
  Serious: Yes (Other)
  Sender: FDA-Public Use
  Company Number: 163-21880-13043680

PATIENT
  Age: 86 Year
  Sex: Male

DRUGS (11)
  1. REVLIMID (LENALIDOMIDE) (5 MILLIGRAM, CAPSULES) [Suspect]
     Indication: PLASMA CELL MYELOMA
     Dosage: 21 IN 28 D
     Route: 048
     Dates: start: 201205
  2. DEXAMETHASONE (DEXAMETHASONE) [Concomitant]
  3. FUROSEMIDE (FUROSEMIDE) [Concomitant]
  4. AREDIA (PAMIDRONATE DISODIUM) [Concomitant]
  5. OMEPRAZOLE (OMEPRAZOLE) [Concomitant]
  6. ISOSORBIC MONO [Concomitant]
  7. ALLOPURINOL (ALLOPURINOL) [Concomitant]
  8. NITROGLYCERIN (GLYCERYL TRINITRATE) [Concomitant]
  9. POTASSIUM (POTASSIUM) [Concomitant]
  10. FOLIC ACID (FOLIC ACID) [Concomitant]
  11. ARANESP (DARBEPOETIN ALFA) [Concomitant]

REACTIONS (1)
  - Platelet count decreased [None]
